FAERS Safety Report 8186313-9 (Version None)
Quarter: 2012Q1

REPORT INFORMATION
  Report Type: 
  Country: None (occurrence: None)
  Receive Date: 20120306
  Receipt Date: 20120227
  Transmission Date: 20120608
  Serious: Yes (Other)
  Sender: FDA-Public Use
  Company Number: US-BAYER-2011-022271

PATIENT
  Age: 21 Year
  Sex: Female
  Weight: 38 kg

DRUGS (8)
  1. DROSPIRENONE AND ETHINYL ESTRADIOL [Suspect]
     Indication: PREMENSTRUAL SYNDROME
  2. YASMIN [Suspect]
     Indication: ACNE
     Dosage: UNK
     Dates: start: 20030101, end: 20090101
  3. YASMIN [Suspect]
     Indication: PREMENSTRUAL SYNDROME
  4. DROSPIRENONE AND ETHINYL ESTRADIOL [Suspect]
     Indication: ACNE
     Dosage: UNK
     Dates: start: 20030101, end: 20090101
  5. MULTI-VITAMIN [Concomitant]
  6. PHENERGAN [Concomitant]
     Indication: NAUSEA
     Dosage: UNK UNK, PRN
     Dates: start: 20071129
  7. NAPROSYN [Concomitant]
     Dosage: UNK
     Dates: start: 20071115
  8. PHENERGAN [Concomitant]
     Indication: VOMITING

REACTIONS (7)
  - INJURY [None]
  - BILIARY DYSKINESIA [None]
  - GALLBLADDER DISORDER [None]
  - ANXIETY [None]
  - CHOLECYSTITIS CHRONIC [None]
  - PAIN [None]
  - DEFORMITY [None]
